FAERS Safety Report 4408492-9 (Version None)
Quarter: 2004Q3

REPORT INFORMATION
  Report Type: 
  Country: None (occurrence: None)
  Receive Date: 20040723
  Receipt Date: 20040719
  Transmission Date: 20050211
  Serious: Yes (Life-Threatening)
  Sender: FDA-Public Use
  Company Number: TPG2004A00113

PATIENT
  Age: 52 Year
  Sex: Male

DRUGS (3)
  1. ACTOS [Suspect]
     Indication: DIABETES MELLITUS NON-INSULIN-DEPENDENT
     Dosage: 30 MG (30 MG, 1 IN 1 D) PER ORAL
     Route: 048
     Dates: start: 20030901, end: 20040401
  2. METFORMIN HCL [Concomitant]
  3. ACETYLSALICYLIC ACID SRT [Concomitant]

REACTIONS (4)
  - CARDIOVASCULAR DISORDER [None]
  - CLOSTRIDIUM COLITIS [None]
  - HAEMOGLOBIN DECREASED [None]
  - RED BLOOD CELL SEDIMENTATION RATE INCREASED [None]
